FAERS Safety Report 4487995-5 (Version None)
Quarter: 2004Q4

REPORT INFORMATION
  Report Type: 
  Country: None (occurrence: None)
  Receive Date: 20041028
  Receipt Date: 20041021
  Transmission Date: 20050328
  Serious: Yes (Life-Threatening, Hospitalization, Disabling)
  Sender: FDA-Public Use
  Company Number: US-MERCK-0410USA03337

PATIENT
  Age: 47 Year
  Sex: Male

DRUGS (2)
  1. VIOXX [Suspect]
     Indication: ARTHRITIS
     Route: 048
  2. VIOXX [Suspect]
     Route: 048

REACTIONS (8)
  - COMA [None]
  - DIABETES MELLITUS INADEQUATE CONTROL [None]
  - INFECTION [None]
  - JOINT SPRAIN [None]
  - OVERDOSE [None]
  - PARESIS [None]
  - TOE AMPUTATION [None]
  - TREATMENT NONCOMPLIANCE [None]
